FAERS Safety Report 8942630 (Version 5)
Quarter: 2013Q1

REPORT INFORMATION
  Report Type: Report from Study
  Country: US (occurrence: US)
  Receive Date: 20121204
  Receipt Date: 20130311
  Transmission Date: 20140127
  Serious: Yes (Death, Hospitalization, Disabling, Other)
  Sender: FDA-Public Use
  Company Number: US-BAYER-2012-124223

PATIENT
  Age: 73 Year
  Sex: Male

DRUGS (2)
  1. STIVARGA [Suspect]
     Indication: COLON NEOPLASM
     Dosage: 160 MG, QD
     Route: 048
     Dates: start: 20121119, end: 20121123
  2. STIVARGA [Suspect]
     Indication: COLON NEOPLASM
     Dosage: 160 MG, (4 TABLETS 40MG)
     Route: 048
     Dates: start: 20121106, end: 20121213

REACTIONS (7)
  - Death [Fatal]
  - Hospitalisation [None]
  - Asthenia [Not Recovered/Not Resolved]
  - Dehydration [Not Recovered/Not Resolved]
  - Aphasia [Recovered/Resolved]
  - Muscular weakness [Not Recovered/Not Resolved]
  - Abasia [Not Recovered/Not Resolved]
